FAERS Safety Report 8595441-5 (Version None)
Quarter: 2012Q3

REPORT INFORMATION
  Report Type: 
  Country: None (occurrence: None)
  Receive Date: 20120815
  Receipt Date: 20120720
  Transmission Date: 20120928
  Serious: No
  Sender: FDA-Public Use
  Company Number: US-BRISTOL-MYERS SQUIBB COMPANY-16793309

PATIENT
  Age: 64 Year
  Sex: Female

DRUGS (2)
  1. ONGLYZA [Suspect]
     Dates: start: 20120501, end: 20120601
  2. LANTUS [Suspect]

REACTIONS (1)
  - DRUG INEFFECTIVE [None]
